FAERS Safety Report 8000183-0 (Version None)
Quarter: 2011Q4

REPORT INFORMATION
  Report Type: 
  Country: None (occurrence: None)
  Receive Date: 20111222
  Receipt Date: 20111212
  Transmission Date: 20120403
  Serious: Yes (Hospitalization)
  Sender: FDA-Public Use
  Company Number: BR-ELI_LILLY_AND_COMPANY-BR201112003023

PATIENT
  Age: 73 Year
  Sex: Female

DRUGS (14)
  1. MACRODANTINA [Concomitant]
     Dosage: UNK, UNKNOWN
     Route: 065
  2. GLUCOSAMINE SULFATE W/CHONDROITIN [Concomitant]
     Dosage: UNK, UNKNOWN
     Route: 065
  3. CALCIUM PHOSPHATE W/COLECALCIFEROL [Concomitant]
     Dosage: UNK, UNKNOWN
     Route: 065
  4. CYMBALTA [Interacting]
     Dosage: 60 MG, QD
     Route: 048
     Dates: start: 20111201
  5. METFORMIN HYDROCHLORIDE [Concomitant]
     Dosage: UNK, UNKNOWN
     Route: 065
  6. CYMBALTA [Suspect]
     Indication: PAIN
     Dosage: 30 MG, QD
     Route: 048
     Dates: start: 20111101
  7. LIBERAN [Concomitant]
     Dosage: UNK, UNKNOWN
     Route: 065
  8. OMEPRAZOLE [Concomitant]
     Dosage: UNK, UNKNOWN
     Route: 065
  9. MELOXICAM [Concomitant]
     Dosage: UNK, UNKNOWN
     Route: 065
  10. CLONAZEPAM [Concomitant]
     Dosage: UNK, UNKNOWN
     Route: 065
  11. ZYPREXA [Interacting]
     Dosage: UNK, UNKNOWN
     Route: 065
  12. REUQUINOL [Concomitant]
     Dosage: UNK, UNKNOWN
     Route: 065
  13. ASPIRIN [Concomitant]
     Dosage: UNK, UNKNOWN
     Route: 065
  14. PREDNISOLONE [Concomitant]
     Dosage: UNK, UNKNOWN
     Route: 065

REACTIONS (7)
  - DRUG INTERACTION [None]
  - MUSCLE RIGIDITY [None]
  - HYPONATRAEMIA [None]
  - CONDITION AGGRAVATED [None]
  - TREMOR [None]
  - HYPOTENSION [None]
  - DELIRIUM [None]
